FAERS Safety Report 7723352-3 (Version None)
Quarter: 2011Q3

REPORT INFORMATION
  Report Type: 
  Country: None (occurrence: None)
  Receive Date: 20110901
  Receipt Date: 20110107
  Transmission Date: 20111222
  Serious: No
  Sender: FDA-Public Use
  Company Number: US-KINGPHARMUSA00001-K201100040

PATIENT
  Sex: Female

DRUGS (3)
  1. AMBIEN [Suspect]
     Indication: SLEEP DISORDER
     Dosage: 10 MG, UNK
     Route: 048
  2. SONATA [Suspect]
     Indication: SLEEP DISORDER
     Dosage: UNK
     Route: 048
  3. AMBIEN CR [Suspect]
     Indication: SLEEP DISORDER
     Dosage: 12.5 MG, UNK
     Route: 048

REACTIONS (3)
  - DEHYDRATION [None]
  - BLOOD SODIUM DECREASED [None]
  - CONDITION AGGRAVATED [None]
